FAERS Safety Report 7125684-9 (Version None)
Quarter: 2010Q4

REPORT INFORMATION
  Report Type: 
  Country: None (occurrence: None)
  Receive Date: 20101129
  Receipt Date: 20101117
  Transmission Date: 20110411
  Serious: Yes (Hospitalization)
  Sender: FDA-Public Use
  Company Number: A0867519A

PATIENT
  Age: 60 Year
  Sex: Female
  Weight: 93.2 kg

DRUGS (8)
  1. AVANDIA [Suspect]
     Dosage: 8MG PER DAY
     Route: 048
     Dates: end: 20070501
  2. AVANDAMET [Suspect]
     Indication: DIABETES MELLITUS
     Route: 048
     Dates: start: 20040901
  3. COZAAR [Concomitant]
  4. LEVOXYL [Concomitant]
  5. LEXAPRO [Concomitant]
  6. SINGULAIR [Concomitant]
  7. TRICOR [Concomitant]
  8. ZETIA [Concomitant]

REACTIONS (1)
  - MYOCARDIAL INFARCTION [None]
